FAERS Safety Report 25076043 (Version 2)
Quarter: 2025Q2

REPORT INFORMATION
  Report Type: Spontaneous
  Country: CA (occurrence: CA)
  Receive Date: 20250313
  Receipt Date: 20250401
  Transmission Date: 20250716
  Serious: Yes (Other)
  Sender: AMERICAN REGENT
  Company Number: CA-AMERICAN REGENT INC-2025001060

PATIENT
  Age: 46 Year
  Sex: Female

DRUGS (2)
  1. VENOFER [Suspect]
     Active Substance: IRON SUCROSE
     Indication: Serum ferritin decreased
     Dates: start: 20241029, end: 20241029
  2. VENOFER [Suspect]
     Active Substance: IRON SUCROSE
     Indication: Haemoglobin decreased

REACTIONS (4)
  - Urticaria [Unknown]
  - Hypotension [Unknown]
  - Back pain [Unknown]
  - Infusion site swelling [Unknown]

NARRATIVE: CASE EVENT DATE: 20241029
